FAERS Safety Report 5339371-0 (Version None)
Quarter: 2007Q2

REPORT INFORMATION
  Report Type: 
  Country: None (occurrence: None)
  Receive Date: 20070525
  Receipt Date: 20070516
  Transmission Date: 20071010
  Serious: Yes (Hospitalization)
  Sender: FDA-Public Use
  Company Number: GXKR2007GB04404

PATIENT
  Age: 90 Year
  Sex: Male

DRUGS (8)
  1. ACETYLSALICYCLIC ACID (NGX) (ACETYLSALICYLIC ACID) UNKNOWN [Suspect]
     Indication: ANTIPLATELET THERAPY
     Dosage: 75 MG, QD, ORAL
     Route: 048
     Dates: start: 20070416, end: 20070424
  2. AMLODIPINE [Concomitant]
  3. CEFRADINE [Concomitant]
  4. CEFUROXIME [Concomitant]
  5. CLARITHROMYCIN [Concomitant]
  6. CODEINE PHOSPHATE AND ACETAMINOPHEN [Concomitant]
  7. DIGOXIN [Concomitant]
  8. ENOXAPARIN (ENOXAPARIN, HEPARIN-FRACTION) [Concomitant]

REACTIONS (1)
  - FAECES DISCOLOURED [None]
